FAERS Safety Report 18912655 (Version 1)
Quarter: 2021Q1

REPORT INFORMATION
  Report Type: Other
  Country: CN (occurrence: CN)
  Receive Date: 20210219
  Receipt Date: 20210219
  Transmission Date: 20210420
  Serious: Yes (Death)
  Sender: FDA-Public Use
  Company Number: CN-ROCHE-2769051

PATIENT

DRUGS (1)
  1. ALTEPLASE. [Suspect]
     Active Substance: ALTEPLASE
     Indication: ISCHAEMIC STROKE
     Dosage: (IV ALTEPLASE 0.9 MG/KG) 2 WITHIN 4.5 HOURS OF SYMPTOM ONSET
     Route: 042

REACTIONS (2)
  - Brain death [Fatal]
  - Brain stem infarction [Fatal]
